FAERS Safety Report 7525178-2 (Version None)
Quarter: 2011Q2

REPORT INFORMATION
  Report Type: 
  Country: None (occurrence: None)
  Receive Date: 20110606
  Receipt Date: 20110523
  Transmission Date: 20111010
  Serious: Yes (Hospitalization)
  Sender: FDA-Public Use
  Company Number: DE-CELGENEUS-062-50794-11052957

PATIENT
  Age: 77 Year
  Sex: Male
  Weight: 77 kg

DRUGS (4)
  1. VIDAZA [Suspect]
     Dosage: 150 MILLIGRAM
     Route: 065
     Dates: start: 20110328
  2. PANTOPRAZOLE [Concomitant]
     Route: 048
  3. VIDAZA [Suspect]
     Dosage: MILLIGRAM
     Route: 065
     Dates: start: 20110426, end: 20110429
  4. VIDAZA [Suspect]
     Dosage: MILLIGRAM
     Route: 065
     Dates: start: 20110502, end: 20110504

REACTIONS (1)
  - HAEMOLYTIC ANAEMIA [None]
